FAERS Safety Report 7057360-5 (Version None)
Quarter: 2010Q4

REPORT INFORMATION
  Report Type: 
  Country: None (occurrence: None)
  Receive Date: 20101022
  Receipt Date: 20101013
  Transmission Date: 20110411
  Serious: Yes (Hospitalization)
  Sender: FDA-Public Use
  Company Number: AT-ASTRAZENECA-2010SE35451

PATIENT
  Age: 627 Month
  Sex: Female
  Weight: 82 kg

DRUGS (3)
  1. NOLVADEX [Suspect]
     Indication: BREAST CANCER
     Route: 048
     Dates: start: 20040419, end: 20070420
  2. ZOLADEX [Suspect]
     Indication: BREAST CANCER
     Route: 058
     Dates: start: 20040419, end: 20070420
  3. ZOMETA [Suspect]
     Indication: BREAST CANCER
     Route: 065
     Dates: start: 20040419, end: 20070420

REACTIONS (6)
  - CYST [None]
  - HAEMORRHAGE [None]
  - MALIGNANT NEOPLASM OF UTERINE ADNEXA [None]
  - METAPLASIA [None]
  - OVARIAN CYST [None]
  - SALPINGITIS [None]
